FAERS Safety Report 9709290 (Version 2)
Quarter: 2014Q1

REPORT INFORMATION
  Report Type: Spontaneous
  Country: IT (occurrence: IT)
  Receive Date: 20131125
  Receipt Date: 20140121
  Transmission Date: 20141002
  Serious: Yes (Other)
  Sender: FDA-Public Use
  Company Number: IT-ABBVIE-13P-083-1171779-00

PATIENT
  Age: 44 Year
  Sex: Female

DRUGS (2)
  1. DEPAKIN CHRONO [Suspect]
     Indication: PRODUCT USED FOR UNKNOWN INDICATION
     Route: 048
     Dates: start: 20120911, end: 20130910
  2. OLANZAPINE [Suspect]
     Indication: PRODUCT USED FOR UNKNOWN INDICATION
     Dates: start: 20120911, end: 20130910

REACTIONS (2)
  - Blood prolactin increased [Not Recovered/Not Resolved]
  - Amenorrhoea [Not Recovered/Not Resolved]
